FAERS Safety Report 24580046 (Version 3)
Quarter: 2024Q4

REPORT INFORMATION
  Report Type: Spontaneous
  Country: US (occurrence: US)
  Receive Date: 20241105
  Receipt Date: 20241231
  Transmission Date: 20250115
  Serious: No
  Sender: PFIZER
  Company Number: US-PFIZER INC-202400287573

PATIENT

DRUGS (1)
  1. MORPHINE SULFATE [Suspect]
     Active Substance: MORPHINE SULFATE
     Dosage: 2 MG
     Dates: start: 20241024

REACTIONS (2)
  - Device mechanical issue [Unknown]
  - Device defective [Unknown]

NARRATIVE: CASE EVENT DATE: 20241025
